FAERS Safety Report 14592654 (Version 5)
Quarter: 2019Q4

REPORT INFORMATION
  Report Type: Report from Study
  Country: US (occurrence: US)
  Receive Date: 20180302
  Receipt Date: 20191206
  Transmission Date: 20200122
  Serious: Yes (Death, Hospitalization, Other)
  Sender: FDA-Public Use
  Company Number: PHEH2018US007275

PATIENT
  Age: 24 Year
  Sex: Male

DRUGS (2)
  1. KYMRIAH [Suspect]
     Active Substance: TISAGENLECLEUCEL
     Indication: ACUTE LYMPHOCYTIC LEUKAEMIA REFRACTORY
     Dosage: 1 DF, ONCE/SINGLE
     Route: 042
     Dates: start: 20171215
  2. IMMUNE GLOBULIN [Concomitant]
     Indication: PRODUCT USED FOR UNKNOWN INDICATION
     Route: 041

REACTIONS (8)
  - Decreased appetite [Unknown]
  - Memory impairment [Unknown]
  - Pyrexia [Recovered/Resolved]
  - Delirium [Unknown]
  - Vision blurred [Unknown]
  - Leukaemia recurrent [Fatal]
  - Abdominal discomfort [Unknown]
  - Dysgeusia [Recovered/Resolved]

NARRATIVE: CASE EVENT DATE: 20171215
